FAERS Safety Report 20762078 (Version 1)
Quarter: 2022Q2

REPORT INFORMATION
  Report Type: Spontaneous
  Country: US (occurrence: US)
  Receive Date: 20220428
  Receipt Date: 20220428
  Transmission Date: 20220721
  Serious: No
  Sender: FDA-Public Use
  Company Number: US-ELI_LILLY_AND_COMPANY-US202204000442

PATIENT
  Sex: Female

DRUGS (3)
  1. TRULICITY [Suspect]
     Active Substance: DULAGLUTIDE
     Indication: Product used for unknown indication
     Dosage: 3 MG, UNKNOWN
     Route: 058
  2. TRULICITY [Suspect]
     Active Substance: DULAGLUTIDE
     Dosage: 3 MG, UNKNOWN
     Route: 058
  3. VITAMIN B12 [Concomitant]
     Active Substance: CYANOCOBALAMIN
     Indication: Product used for unknown indication

REACTIONS (13)
  - Head injury [Unknown]
  - Back disorder [Recovering/Resolving]
  - Hand fracture [Unknown]
  - Fall [Recovering/Resolving]
  - Nausea [Unknown]
  - Contusion [Recovering/Resolving]
  - Scar [Unknown]
  - Road traffic accident [Recovering/Resolving]
  - Lethargy [Not Recovered/Not Resolved]
  - Dry skin [Unknown]
  - Decreased appetite [Not Recovered/Not Resolved]
  - Vomiting [Not Recovered/Not Resolved]
  - Overdose [Unknown]
